FAERS Safety Report 8054222-1 (Version None)
Quarter: 2012Q1

REPORT INFORMATION
  Report Type: 
  Country: None (occurrence: None)
  Receive Date: 20120118
  Receipt Date: 20120109
  Transmission Date: 20120608
  Serious: Yes (Disabling, Other)
  Sender: FDA-Public Use
  Company Number: US-ASTRAZENECA-2012SE01691

PATIENT
  Age: 59 Year
  Sex: Male

DRUGS (11)
  1. NEXIUM [Suspect]
     Indication: GASTROOESOPHAGEAL REFLUX DISEASE
     Route: 048
     Dates: start: 20020901
  2. PRILOSEC [Suspect]
     Indication: GASTROOESOPHAGEAL REFLUX DISEASE
     Route: 048
     Dates: start: 20020901
  3. PRILOSEC [Suspect]
     Indication: DEPRESSION
     Route: 048
     Dates: start: 20020901
  4. PRILOSEC [Suspect]
     Indication: DYSPEPSIA
     Route: 048
     Dates: start: 20020901
  5. PRILOSEC [Suspect]
     Indication: ANXIETY
     Route: 048
     Dates: start: 20020901
  6. NEXIUM [Suspect]
     Indication: PAIN MANAGEMENT
     Route: 048
     Dates: start: 20020901
  7. NEXIUM [Suspect]
     Indication: DEPRESSION
     Route: 048
     Dates: start: 20020901
  8. PRILOSEC [Suspect]
     Indication: PAIN MANAGEMENT
     Route: 048
     Dates: start: 20020901
  9. NEXIUM [Suspect]
     Indication: DYSPEPSIA
     Route: 048
     Dates: start: 20020901
  10. NEXIUM [Suspect]
     Indication: ANXIETY
     Route: 048
     Dates: start: 20020901
  11. NEXIUM [Suspect]
     Indication: HYPERSENSITIVITY
     Route: 048
     Dates: start: 20020901

REACTIONS (24)
  - CEREBROVASCULAR ACCIDENT [None]
  - THROMBOSIS [None]
  - URINARY TRACT INFECTION [None]
  - ERECTILE DYSFUNCTION [None]
  - HYPOKINESIA [None]
  - ASTHENIA [None]
  - MEMORY IMPAIRMENT [None]
  - DEPRESSION [None]
  - FEELINGS OF WORTHLESSNESS [None]
  - PARAESTHESIA [None]
  - BONE DISORDER [None]
  - ISCHAEMIC STROKE [None]
  - MYOCARDIAL INFARCTION [None]
  - BONE DENSITY DECREASED [None]
  - MUSCULOSKELETAL DISORDER [None]
  - DISTURBANCE IN ATTENTION [None]
  - HEMIPLEGIA [None]
  - ABDOMINAL DISCOMFORT [None]
  - BONE PAIN [None]
  - ANXIETY [None]
  - ARTHRALGIA [None]
  - DEFORMITY [None]
  - INTERVERTEBRAL DISC INJURY [None]
  - HYPOAESTHESIA [None]
